FAERS Safety Report 4655134-3 (Version None)
Quarter: 2005Q3

REPORT INFORMATION
  Report Type: 
  Country: None (occurrence: None)
  Receive Date: 20050504
  Receipt Date: 20050425
  Transmission Date: 20060218
  Serious: Yes (Life-Threatening)
  Sender: FDA-Public Use
  Company Number: 2005EU000736

PATIENT
  Sex: Female

DRUGS (9)
  1. PROGRAF [Suspect]
     Indication: LUNG TRANSPLANT
     Dosage: 1.00 MG, BID, ORAL
     Route: 048
     Dates: start: 20040108, end: 20050310
  2. CAMPATH [Suspect]
     Indication: LUNG TRANSPLANT
     Dosage: IV NOS
     Route: 042
     Dates: start: 20050210, end: 20050215
  3. BACTRIM [Suspect]
     Indication: CHEMOTHERAPY
     Dosage: 400.00 MG, UID/QD
     Dates: start: 20050308
  4. VALCYTE [Suspect]
     Indication: CHEMOTHERAPY
     Dosage: 450.00 MG, BID, ORAL
     Route: 048
     Dates: start: 20040101, end: 20050308
  5. NEXIUM [Suspect]
     Indication: GASTROOESOPHAGEAL REFLUX DISEASE
     Dosage: 20.00 MG, UID/QD. ORAL
     Route: 048
     Dates: end: 20050308
  6. CELLCEPT [Suspect]
     Indication: LUNG TRANSPLANT
     Dosage: 1.00 G, BID, ORAL
     Route: 048
     Dates: start: 20040108, end: 20050310
  7. PREDNISONE TAB [Concomitant]
  8. CALCIMAGON D3 (COLECALCIFEROL, CALCIUM CARBONATE) [Concomitant]
  9. EPHYNAL [Concomitant]

REACTIONS (5)
  - ABDOMINAL PAIN [None]
  - AGRANULOCYTOSIS [None]
  - BONE MARROW DEPRESSION [None]
  - LUNG TRANSPLANT REJECTION [None]
  - URTICARIA [None]
